FAERS Safety Report 20478623 (Version 2)
Quarter: 2022Q1

REPORT INFORMATION
  Report Type: Spontaneous
  Country: JP (occurrence: JP)
  Receive Date: 20220216
  Receipt Date: 20220303
  Transmission Date: 20220423
  Serious: Yes (Death, Other)
  Sender: FDA-Public Use
  Company Number: JP-ASTELLAS-2022US005992

PATIENT
  Age: 20 Year
  Sex: Female

DRUGS (1)
  1. AMPHOTERICIN B [Suspect]
     Active Substance: AMPHOTERICIN B
     Indication: Cerebral aspergillosis
     Route: 041

REACTIONS (2)
  - Cerebral aspergillosis [Fatal]
  - Condition aggravated [Fatal]
